FAERS Safety Report 11273810 (Version 1)
Quarter: 2015Q3

REPORT INFORMATION
  Report Type: Spontaneous
  Country: US (occurrence: None)
  Receive Date: 20150714
  Receipt Date: 20150714
  Transmission Date: 20151125
  Serious: Yes (Other)
  Sender: FDA-Public Use
  Company Number: None

PATIENT
  Age: 50 Year
  Sex: Female
  Weight: 60.9 kg

DRUGS (1)
  1. TRAMADOL. [Suspect]
     Active Substance: TRAMADOL
     Dosage: 1 TAB, PRN, PO
     Route: 048
     Dates: start: 20150401, end: 20150412

REACTIONS (1)
  - Seizure [None]

NARRATIVE: CASE EVENT DATE: 20150412
